FAERS Safety Report 5642237-X (Version None)
Quarter: 2008Q1

REPORT INFORMATION
  Report Type: 
  Country: None (occurrence: None)
  Receive Date: 20080225
  Receipt Date: 20080220
  Transmission Date: 20080703
  Serious: Yes (Other)
  Sender: FDA-Public Use
  Company Number: A0710904A

PATIENT
  Age: 64 Year
  Sex: Male

DRUGS (1)
  1. ASPIRIN + CAFFEINE + SALICYLAMIDE (FORMULATION UNKNOWN) (ASPIRIN+CAFFE [Suspect]
     Dosage: INHALED
     Route: 055

REACTIONS (5)
  - ACCIDENTAL EXPOSURE [None]
  - ASTHMA [None]
  - BURNING SENSATION [None]
  - INCORRECT ROUTE OF DRUG ADMINISTRATION [None]
  - LUNG DISORDER [None]
